FAERS Safety Report 18172929 (Version 1)
Quarter: 2020Q3

REPORT INFORMATION
  Report Type: Spontaneous
  Country: BE (occurrence: BE)
  Receive Date: 20200820
  Receipt Date: 20200820
  Transmission Date: 20201103
  Serious: Yes (Hospitalization)
  Sender: FDA-Public Use
  Company Number: BE-TEVA-2020-BE-1814992

PATIENT
  Age: 53 Year
  Sex: Female

DRUGS (11)
  1. DEXAMETHASONE. [Suspect]
     Active Substance: DEXAMETHASONE
     Indication: HERPES OPHTHALMIC
     Route: 061
  2. CEFAZOLIN [Concomitant]
     Active Substance: CEFAZOLIN
     Indication: KERATITIS
     Dosage: HOURLY 50 MG/ML DAY AND NIGHT
     Route: 061
  3. MOXIFLOXACIN. [Concomitant]
     Active Substance: MOXIFLOXACIN
     Indication: HERPES OPHTHALMIC
     Route: 065
  4. OFLOXACIN. [Concomitant]
     Active Substance: OFLOXACIN
     Indication: KERATITIS
     Route: 061
  5. DOXYCYCLINE. [Suspect]
     Active Substance: DOXYCYCLINE
     Indication: KERATITIS FUNGAL
     Dosage: 200 MILLIGRAM DAILY;
     Route: 065
  6. VALACICLOVIR [Concomitant]
     Active Substance: VALACYCLOVIR HYDROCHLORIDE
     Indication: HERPES OPHTHALMIC
     Dosage: 1500 MILLIGRAM DAILY;
     Route: 048
  7. ITRACONAZOLE. [Suspect]
     Active Substance: ITRACONAZOLE
     Indication: KERATITIS FUNGAL
     Dosage: 400 MILLIGRAM DAILY;
     Route: 048
  8. INDOMETHACIN. [Suspect]
     Active Substance: INDOMETHACIN
     Indication: KERATITIS
     Route: 065
  9. VORICONAZOLE. [Suspect]
     Active Substance: VORICONAZOLE
     Indication: KERATITIS FUNGAL
     Dosage: 10MG/ML HOURLY DAY AND NIGHT; INITIALLY CONTINUED AND THEN TAPERED OFF FOLLOWING SURGERY.
     Route: 061
  10. GANCICLOVIR. [Concomitant]
     Active Substance: GANCICLOVIR
     Indication: HERPES OPHTHALMIC
     Route: 061
  11. FORTIFIED TOBRAMYCIN [Concomitant]
     Active Substance: TOBRAMYCIN
     Indication: KERATITIS
     Dosage: HOURLY 14 MG/ML DAY AND NIGHT
     Route: 061

REACTIONS (3)
  - Corneal perforation [Recovered/Resolved]
  - Keratitis fungal [Recovered/Resolved]
  - Drug ineffective [Unknown]
